FAERS Safety Report 8035413 (Version 2)
Quarter: 2012Q4

REPORT INFORMATION
  Report Type: 
  Country: US (occurrence: US)
  Receive Date: 20110714
  Receipt Date: 20121025
  Transmission Date: 20130627
  Serious: Yes (Other)
  Sender: FDA-Public Use
  Company Number: US-US-EMD SERONO, INC.-7069652

PATIENT
  Sex: Male

DRUGS (4)
  1. REBIF [Suspect]
     Indication: MULTIPLE SCLEROSIS
     Dates: start: 200605, end: 200811
  2. REBIF [Suspect]
     Route: 058
     Dates: start: 20090615
  3. WELLBUTRIN [Concomitant]
     Indication: SMOKING CESSATION THERAPY
  4. CITALOPRAM [Concomitant]
     Indication: DEPRESSION

REACTIONS (7)
  - Coronary arterial stent insertion [Unknown]
  - Angioplasty [Unknown]
  - Haematocrit increased [Unknown]
  - Pulmonary mass [Not Recovered/Not Resolved]
  - Nephrolithiasis [Unknown]
  - Platelet count decreased [Not Recovered/Not Resolved]
  - White blood cell count decreased [Unknown]
